FAERS Safety Report 6177379-6 (Version None)
Quarter: 2009Q2

REPORT INFORMATION
  Report Type: 
  Country: None (occurrence: None)
  Receive Date: 20090430
  Receipt Date: 20090430
  Transmission Date: 20091009
  Serious: Yes (Life-Threatening, Hospitalization)
  Sender: FDA-Public Use
  Company Number: None

PATIENT
  Age: 60 Year
  Sex: Female
  Weight: 41 kg

DRUGS (12)
  1. METHADONE HCL [Suspect]
     Indication: DRUG DEPENDENCE
     Dosage: 10 MG TID PO
     Route: 048
     Dates: start: 20090319, end: 20090320
  2. METHADONE HCL [Suspect]
     Indication: DRUG DEPENDENCE
     Dosage: 10 MG BID PO
     Route: 048
     Dates: start: 20090320, end: 20090322
  3. VICODIN [Concomitant]
  4. PERCOCET [Concomitant]
  5. LACTULOSE [Concomitant]
  6. FERROUS SULFATE TAB [Concomitant]
  7. VENLAFAXINE HCL [Concomitant]
  8. APAP TAB [Concomitant]
  9. HEPARIN [Concomitant]
  10. CEFTRIAXONE [Concomitant]
  11. PANTOPRAZOLE SODIUM [Concomitant]
  12. PHYTONADIONE [Concomitant]

REACTIONS (2)
  - RESPIRATORY ACIDOSIS [None]
  - RESPIRATORY DEPRESSION [None]
